FAERS Safety Report 14070777 (Version 2)
Quarter: 2017Q4

REPORT INFORMATION
  Report Type: Report from Study
  Country: US (occurrence: US)
  Receive Date: 20171011
  Receipt Date: 20171025
  Transmission Date: 20180321
  Serious: Yes (Death, Hospitalization)
  Sender: FDA-Public Use
  Company Number: US-TAIHO ONCOLOGY INC-EU-2017-01293

PATIENT
  Age: 80 Year
  Sex: Female
  Weight: 73.3 kg

DRUGS (8)
  1. LONSURF [Suspect]
     Active Substance: TIPIRACIL HYDROCHLORIDE\TRIFLURIDINE
     Indication: COLON CANCER METASTATIC
     Route: 048
     Dates: start: 20160926, end: 201703
  2. SALBUTAMOL [Concomitant]
     Active Substance: ALBUTEROL
     Indication: DYSPNOEA
  3. LONSURF [Suspect]
     Active Substance: TIPIRACIL HYDROCHLORIDE\TRIFLURIDINE
     Indication: COLON CANCER METASTATIC
     Route: 048
     Dates: start: 20170808, end: 20170819
  4. POTASSIUM CHLORIDE. [Concomitant]
     Active Substance: POTASSIUM CHLORIDE
     Indication: MINERAL SUPPLEMENTATION
     Route: 048
  5. NORVASC [Concomitant]
     Active Substance: AMLODIPINE BESYLATE
     Indication: BLOOD PRESSURE ABNORMAL
     Route: 048
  6. NYSTATIN. [Concomitant]
     Active Substance: NYSTATIN
     Indication: ORAL CANDIDIASIS
     Dosage: 100,000 UNITS/ML SUSPENSION - AS NEEDED - SWISH AND SPIT
     Route: 048
  7. SALBUTAMOL [Concomitant]
     Active Substance: ALBUTEROL
     Indication: ASTHMA
     Dosage: 2.5 MG/3 ML (0.083%) - 1 VIAL PRN
     Route: 045
  8. HYOSCINE [Concomitant]
     Active Substance: SCOPOLAMINE
     Dosage: APPLY TOPICALLY TO AFFECTED AREA - AS NEEDED
     Route: 062

REACTIONS (16)
  - Respiratory failure [Unknown]
  - Weight decreased [Unknown]
  - Atrial fibrillation [Unknown]
  - Oedema peripheral [Unknown]
  - Acute respiratory failure [Unknown]
  - Confusional state [Unknown]
  - Productive cough [Unknown]
  - Disease progression [Unknown]
  - Diarrhoea [Unknown]
  - Decreased appetite [Unknown]
  - Pneumonia [Unknown]
  - Balance disorder [Unknown]
  - Anxiety [Unknown]
  - Cardiac arrest [Fatal]
  - Fatigue [Unknown]
  - Dizziness [Unknown]

NARRATIVE: CASE EVENT DATE: 20161024
